FAERS Safety Report 23415443 (Version 6)
Quarter: 2024Q1

REPORT INFORMATION
  Report Type: Report from Study
  Country: US (occurrence: US)
  Receive Date: 20240118
  Receipt Date: 20240321
  Transmission Date: 20240410
  Serious: Yes (Hospitalization, Other)
  Sender: FDA-Public Use
  Company Number: US-UCBSA-2023057244

PATIENT
  Age: 5 Year
  Sex: Female
  Weight: 28.2 kg

DRUGS (12)
  1. FINTEPLA [Suspect]
     Active Substance: FENFLURAMINE
     Indication: Lennox-Gastaut syndrome
     Dosage: 5 MILLILITER, 2X/DAY (BID)
     Route: 048
     Dates: start: 20231113, end: 202401
  2. FINTEPLA [Suspect]
     Active Substance: FENFLURAMINE
     Dosage: 3 MILLILITER, 2X/DAY (BID)
     Route: 048
  3. FINTEPLA [Suspect]
     Active Substance: FENFLURAMINE
     Dosage: 5.9 MILLILITER, 2X/DAY (BID)
     Route: 048
  4. FINTEPLA [Suspect]
     Active Substance: FENFLURAMINE
     Dosage: 5.9 MILLILITER, 2X/DAY (BID)
     Route: 048
  5. FINTEPLA [Suspect]
     Active Substance: FENFLURAMINE
     Dosage: 4.4 MILLILITER, 2X/DAY (BID)
     Route: 048
     Dates: start: 20240125
  6. ONFI [Concomitant]
     Active Substance: CLOBAZAM
     Indication: Seizure
     Dosage: 6 MILLILITER, 2X/DAY (BID)
     Route: 048
  7. VALPROIC ACID [Concomitant]
     Active Substance: VALPROIC ACID
     Indication: Seizure
     Dosage: 2.5 MILLILITER, 2X/DAY (BID)
     Route: 048
  8. VALPROIC ACID [Concomitant]
     Active Substance: VALPROIC ACID
     Indication: Epilepsy
     Dosage: 75 MILLILITER, 2X/DAY (BID)
     Route: 048
  9. VALPROIC ACID [Concomitant]
     Active Substance: VALPROIC ACID
     Dosage: 140 MILLIGRAM, 2X/DAY (BID)
     Route: 048
  10. ZONEGRAN [Concomitant]
     Active Substance: ZONISAMIDE
     Indication: Seizure
     Dosage: 3.5 MILLILITER, 2X/DAY (BID)
     Route: 048
  11. CLOBAZAM [Concomitant]
     Active Substance: CLOBAZAM
     Indication: Epilepsy
     Dosage: 15 MILLIGRAM, 2X/DAY (BID)
     Route: 048
  12. ZONISAMIDE [Concomitant]
     Active Substance: ZONISAMIDE
     Indication: Surgery
     Dosage: 70 MILLIGRAM, 2X/DAY (BID)
     Route: 048

REACTIONS (9)
  - Urinary tract infection [Recovered/Resolved]
  - Urinary incontinence [Recovering/Resolving]
  - Seizure cluster [Not Recovered/Not Resolved]
  - Somnolence [Not Recovered/Not Resolved]
  - Gait disturbance [Not Recovered/Not Resolved]
  - Decreased appetite [Not Recovered/Not Resolved]
  - Fatigue [Not Recovered/Not Resolved]
  - Weight decreased [Not Recovered/Not Resolved]
  - Pollakiuria [Not Recovered/Not Resolved]

NARRATIVE: CASE EVENT DATE: 20231101
